FAERS Safety Report 9513787 (Version 1)
Quarter: 2013Q3

REPORT INFORMATION
  Report Type: Spontaneous
  Country: BR (occurrence: BR)
  Receive Date: 20130910
  Receipt Date: 20130910
  Transmission Date: 20140515
  Serious: Yes (Hospitalization)
  Sender: FDA-Public Use
  Company Number: BR-ASTRAZENECA-2013SE67307

PATIENT
  Age: 56 Year
  Sex: Male
  Weight: 87 kg

DRUGS (9)
  1. CRESTOR [Suspect]
     Indication: BLOOD CHOLESTEROL INCREASED
     Route: 048
     Dates: start: 201303
  2. CRESTOR [Suspect]
     Indication: BLOOD TRIGLYCERIDES INCREASED
     Route: 048
     Dates: start: 201303
  3. BRILINTA [Suspect]
     Indication: THROMBOSIS IN DEVICE
     Route: 048
     Dates: start: 201308
  4. BENICAR HCT [Suspect]
     Indication: HYPERTENSION
     Dosage: 20/12.5MG
     Route: 065
     Dates: start: 2009
  5. CLOPIDOGREL [Suspect]
     Route: 065
     Dates: end: 2013
  6. LANTUS [Concomitant]
     Indication: DIABETES MELLITUS
  7. JANUMET [Concomitant]
     Indication: DIABETES MELLITUS
  8. DIAMICRON [Concomitant]
     Indication: DIABETES MELLITUS
  9. UNKNOWN [Concomitant]
     Indication: DIABETES MELLITUS

REACTIONS (3)
  - Peripheral artery thrombosis [Recovered/Resolved]
  - Thrombosis in device [Recovered/Resolved]
  - Off label use [Unknown]
